FAERS Safety Report 23398331 (Version 1)
Quarter: 2024Q1

REPORT INFORMATION
  Report Type: Spontaneous
  Country: US (occurrence: US)
  Receive Date: 20240112
  Receipt Date: 20240112
  Transmission Date: 20240410
  Serious: Yes (Hospitalization)
  Sender: FDA-Public Use
  Company Number: US-PPDUS-2023ST005015

PATIENT
  Age: 48 Year
  Sex: Female

DRUGS (2)
  1. ORSERDU [Suspect]
     Active Substance: ELACESTRANT
     Indication: Product used for unknown indication
     Route: 048
     Dates: start: 20231013
  2. ORSERDU [Suspect]
     Active Substance: ELACESTRANT
     Indication: Breast cancer metastatic

REACTIONS (7)
  - Septic shock [Unknown]
  - Obstructive nephropathy [Unknown]
  - Renal neoplasm [Unknown]
  - Therapy cessation [Unknown]
  - Drug ineffective [Unknown]
  - Illness [Unknown]
  - Dyspepsia [Unknown]
